FAERS Safety Report 8435453-5 (Version None)
Quarter: 2012Q2

REPORT INFORMATION
  Report Type: 
  Country: None (occurrence: None)
  Receive Date: 20120614
  Receipt Date: 20120605
  Transmission Date: 20120825
  Serious: Yes (Hospitalization)
  Sender: FDA-Public Use
  Company Number: US-BAYER-2012-032779

PATIENT
  Age: 42 Year
  Sex: Female
  Weight: 89.796 kg

DRUGS (25)
  1. YASMIN [Suspect]
     Indication: CONTRACEPTION
     Dosage: UNK
     Dates: start: 20050414, end: 20080629
  2. NAPROXEN (ALEVE) [Concomitant]
  3. MULTIPLE VITAMINS [Concomitant]
     Dosage: 1 DAILY
     Route: 048
     Dates: start: 20090109
  4. PENTASA [Concomitant]
     Indication: COLITIS ULCERATIVE
     Dosage: 500 MG, 2 TID
     Dates: start: 20100315
  5. HYDROCORTISONE ACETATE [Concomitant]
     Dosage: 25 MG, UNK
     Dates: start: 20100124
  6. FLAGYL [Concomitant]
     Dosage: UNK
     Route: 042
     Dates: start: 20100121
  7. PRILOSEC [Concomitant]
     Dosage: 20 MG, DAILY
     Route: 048
     Dates: start: 20100121
  8. DROSPIRENONE AND ETHINYL ESTRADIOL [Suspect]
     Indication: CONTRACEPTION
     Dosage: UNK
     Dates: start: 20080630, end: 20100315
  9. SYMBYAX [Concomitant]
     Dosage: UNK
     Dates: start: 20100106
  10. AMBIEN CR [Concomitant]
     Dosage: 12.5 MG, 1 AT HS
     Route: 048
     Dates: start: 20090622
  11. BENTYL [Concomitant]
     Dosage: 20 MG, BEFORE MEALS AND BEDTIME
     Dates: start: 20100121
  12. OMEPRAZOLE [Concomitant]
     Dosage: 20 MG, UNK
     Dates: start: 20100121
  13. ATIVAN [Concomitant]
     Dosage: 0.5 MG, 1 DAILY AS NEEDED
     Route: 048
     Dates: start: 20100106
  14. CIPROFLOXACIN [Concomitant]
     Dosage: 250 MG, UNK
     Dates: start: 20100111
  15. AZITHROMYCIN [Concomitant]
     Dosage: 250 MG, UNK
     Dates: start: 20100106
  16. PREDNISONE TAB [Concomitant]
     Dosage: 20 MG, TID (DAILY THREE TIMES A DAY) [TIMES] 14 DAYS THEN 20 MG BID (INTERPRETED AS TWICE
     Route: 048
     Dates: start: 20100121
  17. ZOLOFT [Concomitant]
     Indication: FATIGUE
     Dosage: 100 MG, 1 DAILY
     Route: 048
     Dates: start: 20100204
  18. ASACOL [Concomitant]
     Dosage: 400 MG, UNK
     Dates: start: 20100121
  19. DIPHENOXYLATE HCL + ATROPINE SULFATE [Concomitant]
     Dosage: 2.5 MG, UNK
     Dates: start: 20100111
  20. DICYCLOMINE [Concomitant]
     Dosage: 20 MG, UNK
     Dates: start: 20100121
  21. IBUPROFEN [Concomitant]
  22. SERTRALINE HYDROCHLORIDE [Concomitant]
     Dosage: 100 MG, UNK
     Dates: start: 20100111
  23. LEVAQUIN [Concomitant]
     Dosage: UNK
     Route: 042
     Dates: start: 20100121
  24. IMODIUM [Concomitant]
     Dosage: 2 MG, TID PRN
     Route: 048
  25. ZOLOFT [Concomitant]
     Indication: DEPRESSION

REACTIONS (5)
  - DEEP VEIN THROMBOSIS [None]
  - OEDEMA PERIPHERAL [None]
  - PAIN [None]
  - INJURY [None]
  - PAIN IN EXTREMITY [None]
